FAERS Safety Report 25093918 (Version 1)
Quarter: 2025Q1

REPORT INFORMATION
  Report Type: Spontaneous
  Country: US (occurrence: US)
  Receive Date: 20250319
  Receipt Date: 20250319
  Transmission Date: 20250408
  Serious: Yes (Other)
  Sender: AUROBINDO
  Company Number: US-AUROBINDO-AUR-APL-2025-014599

PATIENT
  Age: 6 Year
  Sex: Female
  Weight: 18.594 kg

DRUGS (4)
  1. FLUTICASONE PROPIONATE [Suspect]
     Active Substance: FLUTICASONE PROPIONATE
     Indication: Rhinitis allergic
     Dosage: 110 MICROGRAM, TWO TIMES A DAY (PRESCRIBED OVERDOSE) METERED DOSE INHALER CONTINUOUS FOR 18 MONTHS.
  2. FLUTICASONE PROPIONATE [Suspect]
     Active Substance: FLUTICASONE PROPIONATE
     Indication: Asthma
  3. MOMETASONE FUROATE MONOHYDRATE [Suspect]
     Active Substance: MOMETASONE FUROATE MONOHYDRATE
     Indication: Rhinitis allergic
     Dosage: UNK UNK, ONCE A DAY (AS 2 SPRAY PER NOSTRIL DAILY CONTINUOUS FOR 18 MONTHS.)
     Route: 045
  4. MOMETASONE FUROATE MONOHYDRATE [Suspect]
     Active Substance: MOMETASONE FUROATE MONOHYDRATE
     Indication: Asthma

REACTIONS (3)
  - Cushing^s syndrome [Recovered/Resolved]
  - Off label use [Unknown]
  - Prescribed overdose [Unknown]
